FAERS Safety Report 6844977-3 (Version None)
Quarter: 2010Q3

REPORT INFORMATION
  Report Type: 
  Country: None (occurrence: None)
  Receive Date: 20100715
  Receipt Date: 20100708
  Transmission Date: 20110219
  Serious: Yes (Other)
  Sender: FDA-Public Use
  Company Number: US-PFIZER INC-2010020809

PATIENT
  Sex: Male
  Weight: 104 kg

DRUGS (2)
  1. LIPITOR [Suspect]
     Indication: HYPERLIPIDAEMIA
     Dosage: 10 MG, 1X/DAY AT BEDTIME
     Dates: start: 20060501
  2. LIPITOR [Suspect]
     Dosage: 10 MG
     Dates: start: 20091101

REACTIONS (3)
  - HEART TRANSPLANT [None]
  - JOINT SWELLING [None]
  - MYOPATHY [None]
